FAERS Safety Report 7171533-2 (Version None)
Quarter: 2010Q4

REPORT INFORMATION
  Report Type: 
  Country: None (occurrence: None)
  Receive Date: 20101217
  Receipt Date: 20101210
  Transmission Date: 20110411
  Serious: Yes (Other)
  Sender: FDA-Public Use
  Company Number: US-PFIZER INC-2010169434

PATIENT
  Sex: Female
  Weight: 60.317 kg

DRUGS (2)
  1. DAXID [Suspect]
     Dosage: UNK MG, 1X/DAY
     Route: 048
  2. PREMARIN [Concomitant]
     Indication: HORMONE THERAPY
     Dosage: 0.3 MG, 3X/WEEK
     Route: 048

REACTIONS (5)
  - CRYING [None]
  - DEPRESSION [None]
  - DRUG INEFFECTIVE [None]
  - HYPERSOMNIA [None]
  - PRODUCT SUBSTITUTION ISSUE [None]
